FAERS Safety Report 14992878 (Version 1)
Quarter: 2018Q2

REPORT INFORMATION
  Report Type: Spontaneous
  Country: US (occurrence: US)
  Receive Date: 20180610
  Receipt Date: 20180610
  Transmission Date: 20180711
  Serious: No
  Sender: FDA-Public Use
  Company Number: US-TEVA-2018-US-903856

PATIENT
  Age: 37 Year
  Sex: Male

DRUGS (1)
  1. AUSTEDO [Suspect]
     Active Substance: DEUTETRABENAZINE
     Indication: DYSKINESIA
     Dosage: 18 MILLIGRAM DAILY;
     Route: 048
     Dates: start: 201802

REACTIONS (3)
  - Abnormal behaviour [Unknown]
  - Mood altered [Unknown]
  - Somnolence [Unknown]

NARRATIVE: CASE EVENT DATE: 201802
